FAERS Safety Report 7503822-3 (Version None)
Quarter: 2011Q2

REPORT INFORMATION
  Report Type: 
  Country: None (occurrence: None)
  Receive Date: 20110401
  Receipt Date: 20100203
  Transmission Date: 20111010
  Serious: Yes (Hospitalization, Other)
  Sender: FDA-Public Use
  Company Number: 223029USA

PATIENT
  Age: 72 Year
  Sex: Female
  Weight: 62.5964 kg

DRUGS (2)
  1. TRIAMTERENE [Concomitant]
  2. TAMOXIFEN CITRATE [Suspect]
     Indication: NEOPLASM MALIGNANT
     Dates: start: 20040101, end: 20090701

REACTIONS (4)
  - OEDEMA PERIPHERAL [None]
  - HYPOAESTHESIA [None]
  - PAIN IN EXTREMITY [None]
  - THROMBOSIS [None]
